FAERS Safety Report 9185558 (Version 1)
Quarter: 2013Q1

REPORT INFORMATION
  Report Type: Spontaneous
  Country: US (occurrence: None)
  Receive Date: 20130321
  Receipt Date: 20130321
  Transmission Date: 20140127
  Serious: Yes (Hospitalization, Other)
  Sender: FDA-Public Use
  Company Number: DAV-AE-DIA-13-05

PATIENT
  Age: 25 Year
  Sex: Male

DRUGS (1)
  1. DIAZEPAM [Suspect]
     Indication: ANAESTHETIC PREMEDICATION
     Route: 042

REACTIONS (13)
  - Hypotension [None]
  - Hypertension [None]
  - Tachycardia [None]
  - Diplopia [None]
  - Headache [None]
  - Pyrexia [None]
  - Blister [None]
  - Swelling [None]
  - Pain in extremity [None]
  - Chest discomfort [None]
  - Dizziness [None]
  - Restlessness [None]
  - Aggression [None]
